FAERS Safety Report 6741705-7 (Version None)
Quarter: 2010Q2

REPORT INFORMATION
  Report Type: 
  Country: None (occurrence: None)
  Receive Date: 20100526
  Receipt Date: 20100524
  Transmission Date: 20101027
  Serious: Yes (Hospitalization)
  Sender: FDA-Public Use
  Company Number: US-GILEAD-2010-0029399

PATIENT
  Sex: Female
  Weight: 77.634 kg

DRUGS (6)
  1. LETAIRIS [Suspect]
     Indication: PULMONARY ARTERIAL HYPERTENSION
     Route: 048
     Dates: start: 20100309
  2. LASIX [Concomitant]
  3. PREDNISONE TAB [Concomitant]
  4. NEXIUM [Concomitant]
  5. FERROUS SULFATE TAB [Concomitant]
  6. KLOR-CON [Concomitant]

REACTIONS (1)
  - GASTROINTESTINAL HAEMORRHAGE [None]
